FAERS Safety Report 10061657 (Version 1)
Quarter: 2014Q2

REPORT INFORMATION
  Report Type: Spontaneous
  Country: US (occurrence: None)
  Receive Date: 20140404
  Receipt Date: 20140404
  Transmission Date: 20141212
  Serious: Yes (Other)
  Sender: FDA-Public Use
  Company Number: None

PATIENT
  Age: 65 Year
  Sex: Female
  Weight: 68.04 kg

DRUGS (1)
  1. CYMBALTA [Suspect]
     Indication: DRUG THERAPY
     Dosage: 1 CAPSULE
     Route: 048
     Dates: start: 20140206, end: 20140209

REACTIONS (9)
  - Dyspepsia [None]
  - Vomiting [None]
  - Weight decreased [None]
  - Discomfort [None]
  - Abdominal pain upper [None]
  - Dyspepsia [None]
  - Unevaluable event [None]
  - Skeletal injury [None]
  - Blood glucose abnormal [None]
